FAERS Safety Report 4627893-7 (Version None)
Quarter: 2005Q2

REPORT INFORMATION
  Report Type: 
  Country: None (occurrence: None)
  Receive Date: 20050404
  Receipt Date: 20050404
  Transmission Date: 20051028
  Serious: Yes (Life-Threatening)
  Sender: FDA-Public Use
  Company Number: None

PATIENT
  Age: 49 Year
  Sex: Male
  Weight: 75.2971 kg

DRUGS (11)
  1. VELCADE [Suspect]
     Dosage: 1.60MG/M2 D1, AND 8 INTRAVENOUS
     Route: 042
     Dates: start: 20050323, end: 20050330
  2. OXALIPLATIN [Suspect]
     Dosage: 130MG/M2 D1 INTRAVENOUS
     Route: 042
  3. MOXIFLOXACIN HCL [Concomitant]
  4. SENNA-S [Concomitant]
  5. DULCOLAX [Concomitant]
  6. COMPAZINE [Concomitant]
  7. ZOFRAN [Concomitant]
  8. ATIVAN [Concomitant]
  9. RESTORIL [Concomitant]
  10. LEXAPRIL [Concomitant]
  11. MS CONTIN [Concomitant]

REACTIONS (6)
  - DYSPNOEA [None]
  - LUNG INFILTRATION [None]
  - MALIGNANT NEOPLASM PROGRESSION [None]
  - NAUSEA [None]
  - OXYGEN SATURATION DECREASED [None]
  - VOMITING [None]
